FAERS Safety Report 10784408 (Version 1)
Quarter: 2015Q1

REPORT INFORMATION
  Report Type: Spontaneous
  Country: US (occurrence: None)
  Receive Date: 20150209
  Receipt Date: 20150209
  Transmission Date: 20150721
  Serious: No
  Sender: FDA-Public Use
  Company Number: None

PATIENT
  Age: 56 Year
  Sex: Male
  Weight: 83.46 kg

DRUGS (1)
  1. ABREVA [Suspect]
     Active Substance: DOCOSANOL
     Indication: ORAL HERPES
     Dosage: CREME; X5 DAILY APPLICATION
     Route: 061
     Dates: start: 20150202, end: 20150203

REACTIONS (2)
  - Unevaluable event [None]
  - Condition aggravated [None]

NARRATIVE: CASE EVENT DATE: 20150203
